FAERS Safety Report 8921271 (Version 1)
Quarter: 2012Q4

REPORT INFORMATION
  Report Type: 
  Country: US (occurrence: US)
  Receive Date: 20121123
  Receipt Date: 20121123
  Transmission Date: 20130627
  Serious: No
  Sender: FDA-Public Use
  Company Number: US-BAYER-2012-121666

PATIENT
  Age: 70 Year
  Sex: Male
  Weight: 88.44 kg

DRUGS (4)
  1. ALEVE CAPLET/TABLET,MIDOL EXTENDED RELIEF CAPLET [Suspect]
     Indication: PAIN RELIEF
     Dosage: 1 DF
     Route: 048
     Dates: start: 20121104
  2. ALEVE CAPLET/TABLET,MIDOL EXTENDED RELIEF CAPLET [Suspect]
     Indication: KNEE PAIN
  3. HIGH CHOLESTEROL MEDICATION [Concomitant]
  4. ANTIDEPRESSANTS [Concomitant]

REACTIONS (2)
  - Drug ineffective [None]
  - Insomnia [None]
